FAERS Safety Report 6806117-6 (Version None)
Quarter: 2010Q2

REPORT INFORMATION
  Report Type: 
  Country: None (occurrence: None)
  Receive Date: 20100629
  Receipt Date: 20071231
  Transmission Date: 20101027
  Serious: No
  Sender: FDA-Public Use
  Company Number: US-PFIZER INC-2008000215

PATIENT
  Sex: Male

DRUGS (5)
  1. ALPRAZOLAM [Suspect]
     Indication: DEPRESSION
     Dates: start: 19790101
  2. CRESTOR [Concomitant]
  3. ZETIA [Concomitant]
  4. OMEPRAZOLE [Concomitant]
  5. ACETYLSALICYLIC ACID [Concomitant]

REACTIONS (1)
  - DRUG SCREEN NEGATIVE [None]
